FAERS Safety Report 16329551 (Version 1)
Quarter: 2019Q2

REPORT INFORMATION
  Report Type: Spontaneous
  Country: US (occurrence: US)
  Receive Date: 20190520
  Receipt Date: 20190520
  Transmission Date: 20190711
  Serious: Yes (Hospitalization, Other)
  Sender: FDA-Public Use
  Company Number: US-MALLINCKRODT-T201901773

PATIENT
  Age: 39 Year
  Sex: Female

DRUGS (6)
  1. COCAINE [Suspect]
     Active Substance: COCAINE
     Indication: PRODUCT USED FOR UNKNOWN INDICATION
     Dosage: UNK
     Route: 065
  2. METHADONE [Suspect]
     Active Substance: METHADONE HYDROCHLORIDE
     Indication: DRUG DEPENDENCE
     Dosage: 85 MG, QD
     Route: 065
  3. METHADONE [Suspect]
     Active Substance: METHADONE HYDROCHLORIDE
     Dosage: 5 MG, UNK
     Route: 065
  4. DEXTROAMPHETAMINE SULFATE. [Suspect]
     Active Substance: DEXTROAMPHETAMINE SULFATE
     Indication: ATTENTION DEFICIT/HYPERACTIVITY DISORDER
     Dosage: 10 MG, UNK
     Route: 065
  5. METHADONE [Suspect]
     Active Substance: METHADONE HYDROCHLORIDE
     Dosage: 75 MG, QD
     Route: 065
  6. DEXTROAMPHETAMINE SULFATE. [Suspect]
     Active Substance: DEXTROAMPHETAMINE SULFATE
     Indication: TOURETTE^S DISORDER
     Dosage: UNK
     Route: 065

REACTIONS (11)
  - Nightmare [Recovering/Resolving]
  - Agitation [Unknown]
  - Pyelonephritis [Recovered/Resolved]
  - Flashback [Recovering/Resolving]
  - Eating disorder [Unknown]
  - Anxiety [Unknown]
  - Insomnia [Recovering/Resolving]
  - Staphylococcal infection [Unknown]
  - Post-traumatic stress disorder [Recovering/Resolving]
  - Drug withdrawal syndrome [Recovering/Resolving]
  - Depression [Unknown]
